FAERS Safety Report 14572816 (Version 1)
Quarter: 2018Q1

REPORT INFORMATION
  Report Type: Spontaneous
  Country: AU (occurrence: AU)
  Receive Date: 20180226
  Receipt Date: 20180226
  Transmission Date: 20180509
  Serious: Yes (Other)
  Sender: FDA-Public Use
  Company Number: AU-INDIVIOR LIMITED-INDV-109120-2018

PATIENT
  Sex: Male

DRUGS (1)
  1. BUPRENORPHINE. [Suspect]
     Active Substance: BUPRENORPHINE
     Indication: PRODUCT USED FOR UNKNOWN INDICATION
     Dosage: UNKNOWN
     Route: 065

REACTIONS (6)
  - Persecutory delusion [Unknown]
  - Product use issue [Unknown]
  - Hallucination, visual [Unknown]
  - Delusion of reference [Unknown]
  - Drug withdrawal syndrome [Unknown]
  - Intentional underdose [Unknown]
